FAERS Safety Report 4989154-6 (Version None)
Quarter: 2006Q2

REPORT INFORMATION
  Report Type: 
  Country: None (occurrence: None)
  Receive Date: 20060425
  Receipt Date: 20060414
  Transmission Date: 20061013
  Serious: Yes (Other)
  Sender: FDA-Public Use
  Company Number: 2006051939

PATIENT
  Age: 17 Year
  Sex: Female
  Weight: 58.9676 kg

DRUGS (2)
  1. DRAMAMINE [Suspect]
     Dosage: 7-8 TABLETS ONCE, ORAL
     Route: 048
     Dates: start: 20060414, end: 20060414
  2. OTHER ANTI-ASTHMATICS, INHALANTS (OTHER ANTI-ASTHMATICS, INHALANTS) [Concomitant]

REACTIONS (6)
  - DRUG EXPOSURE DURING PREGNANCY [None]
  - DYSPNOEA [None]
  - HEART RATE DECREASED [None]
  - MULTIPLE DRUG OVERDOSE INTENTIONAL [None]
  - SOMNOLENCE [None]
  - SYNCOPE [None]
